FAERS Safety Report 5940223-3 (Version None)
Quarter: 2008Q4

REPORT INFORMATION
  Report Type: 
  Country: None (occurrence: None)
  Receive Date: 20081104
  Receipt Date: 20081021
  Transmission Date: 20090506
  Serious: Yes (Hospitalization, Other)
  Sender: FDA-Public Use
  Company Number: SE-ELI_LILLY_AND_COMPANY-SE200810004895

PATIENT
  Sex: Female

DRUGS (3)
  1. GEMZAR [Suspect]
     Indication: HEPATIC NEOPLASM MALIGNANT
     Dosage: UNK, UNKNOWN
     Route: 042
     Dates: start: 20080801, end: 20080901
  2. XELODA [Concomitant]
     Indication: HEPATIC NEOPLASM MALIGNANT
     Dosage: UNK, UNKNOWN FOR THREE WEEKS
     Route: 048
     Dates: start: 20080801, end: 20080901
  3. PREDNISOLONE [Concomitant]
     Dosage: 5 MG, UNKNOWN
     Route: 065

REACTIONS (5)
  - ANOREXIA [None]
  - BILE DUCT CANCER [None]
  - DIARRHOEA [None]
  - FATIGUE [None]
  - NAUSEA [None]
